FAERS Safety Report 5194298-2 (Version None)
Quarter: 2006Q4

REPORT INFORMATION
  Report Type: 
  Country: None (occurrence: None)
  Receive Date: 20061228
  Receipt Date: 20061027
  Transmission Date: 20070319
  Serious: Yes (Death, Hospitalization)
  Sender: FDA-Public Use
  Company Number: BR-PFIZER INC-2006132489

PATIENT
  Sex: Male

DRUGS (3)
  1. FRONTAL XR [Suspect]
     Indication: DEPRESSED MOOD
     Route: 048
     Dates: start: 20050101, end: 20051101
  2. ATENOL [Concomitant]
     Route: 048
     Dates: end: 20051201
  3. ENALAPRIL MALEATE [Concomitant]
     Route: 048
     Dates: end: 20051201

REACTIONS (7)
  - ABDOMINAL PAIN [None]
  - LIVER DISORDER [None]
  - PORTAL VEIN OCCLUSION [None]
  - PYREXIA [None]
  - TREMOR [None]
  - URINE COLOUR ABNORMAL [None]
  - VOMITING [None]
